FAERS Safety Report 16221397 (Version 3)
Quarter: 2019Q2

REPORT INFORMATION
  Report Type: Spontaneous
  Country: CA (occurrence: CA)
  Receive Date: 20190422
  Receipt Date: 20190529
  Transmission Date: 20190711
  Serious: Yes (Other)
  Sender: FDA-Public Use
  Company Number: CA-CELLTRION INC.-2018CA023493

PATIENT

DRUGS (6)
  1. INFLECTRA [Suspect]
     Active Substance: INFLIXIMAB-DYYB
     Dosage: 500 MG, (EVERY 6 WEEKS)
     Route: 042
     Dates: start: 20190515
  2. INFLECTRA [Suspect]
     Active Substance: INFLIXIMAB-DYYB
     Dosage: 5 MG/KG (REPORTED RECEIVING 450MG), 0, 2, 6 WEEKS, AND Q (EVERY) 8 WEEKS
     Route: 042
     Dates: start: 20190103
  3. INFLECTRA [Suspect]
     Active Substance: INFLIXIMAB-DYYB
     Dosage: 500 MG, (EVERY 6 WEEKS)
     Route: 042
     Dates: start: 20190409
  4. INFLECTRA [Suspect]
     Active Substance: INFLIXIMAB-DYYB
     Dosage: 5 MG/KG (REPORTED RECEIVING 450MG), 0, 2, 6 WEEKS, AND Q (EVERY) 8 WEEKS
     Route: 042
     Dates: start: 20190228, end: 20190228
  5. INFLECTRA [Suspect]
     Active Substance: INFLIXIMAB-DYYB
     Indication: ANKYLOSING SPONDYLITIS
     Dosage: 5 MG/KG, 0, 2, 6 WEEKS, AND Q (EVERY) 8 WEEKS
     Route: 042
     Dates: start: 20180927
  6. INFLECTRA [Suspect]
     Active Substance: INFLIXIMAB-DYYB
     Dosage: 5 MG/KG, 0, 2, 6 WEEKS, AND Q (EVERY) 8 WEEKS
     Route: 042
     Dates: start: 20181011

REACTIONS (10)
  - Weight increased [Unknown]
  - Pain [Not Recovered/Not Resolved]
  - Nasopharyngitis [Unknown]
  - Off label use [Unknown]
  - Incorrect product administration duration [Unknown]
  - Inflammation [Unknown]
  - C-reactive protein increased [Unknown]
  - Gait disturbance [Not Recovered/Not Resolved]
  - Product use issue [Unknown]
  - Therapeutic response shortened [Unknown]

NARRATIVE: CASE EVENT DATE: 2018
